FAERS Safety Report 25503986 (Version 1)
Quarter: 2025Q2

REPORT INFORMATION
  Report Type: Spontaneous
  Country: US (occurrence: None)
  Receive Date: 20250630
  Receipt Date: 20250630
  Transmission Date: 20250716
  Serious: No
  Sender: FDA-CTU
  Company Number: None

PATIENT

DRUGS (2)
  1. OFLOXACIN OTIC [Suspect]
     Active Substance: OFLOXACIN
  2. OFLOXACIN [Suspect]
     Active Substance: OFLOXACIN

REACTIONS (1)
  - Drug ineffective [None]
